FAERS Safety Report 16969452 (Version 7)
Quarter: 2020Q4

REPORT INFORMATION
  Report Type: Spontaneous
  Country: US (occurrence: US)
  Receive Date: 20191029
  Receipt Date: 20201209
  Transmission Date: 20210113
  Serious: Yes (Hospitalization, Other)
  Sender: FDA-Public Use
  Company Number: US-PFIZER INC-2019461872

PATIENT
  Age: 78 Year
  Sex: Male
  Weight: 83.9 kg

DRUGS (16)
  1. LYRICA [Suspect]
     Active Substance: PREGABALIN
     Indication: BURNING SENSATION
     Dosage: 75 MG, 2X/DAY
     Route: 048
  2. LYRICA [Suspect]
     Active Substance: PREGABALIN
     Indication: NEUROPATHY PERIPHERAL
  3. LOSARTAN POTASSIUM. [Concomitant]
     Active Substance: LOSARTAN POTASSIUM
     Dosage: 100, 1X/DAY (LOSARTAN POTASSIUM 100)
  4. OSENI [Concomitant]
     Active Substance: ALOGLIPTIN BENZOATE\PIOGLITAZONE HYDROCHLORIDE
     Dosage: 25-30, 1X/DAY
  5. LYRICA [Suspect]
     Active Substance: PREGABALIN
     Indication: PAIN IN EXTREMITY
  6. GLUCOPHAGE [Concomitant]
     Active Substance: METFORMIN HYDROCHLORIDE
     Dosage: 500, 1X/DAY
  7. GLUCOPHAGE [Concomitant]
     Active Substance: METFORMIN HYDROCHLORIDE
     Dosage: 1000, 2X/DAY
  8. GLIPIZIDE. [Concomitant]
     Active Substance: GLIPIZIDE
     Dosage: 10, 2X/DAY (GLIPIZIDE 10)
  9. METOPROLOL. [Concomitant]
     Active Substance: METOPROLOL
     Dosage: 100, 2X/DAY (METOPROLOL 100)
  10. LYRICA [Suspect]
     Active Substance: PREGABALIN
     Indication: PRURITUS
  11. SIMVASTATIN. [Concomitant]
     Active Substance: SIMVASTATIN
     Dosage: 40, 1X/DAY (SIMVASTATIN 40)
  12. LASIX [Concomitant]
     Active Substance: FUROSEMIDE
     Indication: DIURETIC THERAPY
     Dosage: 20, 1X/DAY
  13. ASPIRIN 81 [Concomitant]
     Active Substance: ASPIRIN
     Dosage: 81, 1X/DAY [ASPIRIN  81]
  14. PROCHLORPERAZINE. [Concomitant]
     Active Substance: PROCHLORPERAZINE
     Dosage: 10, AS NEEDED (PROCHLORPERAZINE 10)
  15. ALLOPURINOL. [Concomitant]
     Active Substance: ALLOPURINOL
     Dosage: 100, 1X/DAY (ALLOPURINOL 100)
  16. TRAMADOL. [Concomitant]
     Active Substance: TRAMADOL
     Dosage: 50, 3 A DAY AS NEEDED (TRAMADOL 50)

REACTIONS (10)
  - Immune system disorder [Unknown]
  - Neoplasm malignant [Recovered/Resolved]
  - Gait disturbance [Unknown]
  - Fall [Unknown]
  - Hypersensitivity [Unknown]
  - Illness [Unknown]
  - Hypoacusis [Unknown]
  - Pneumonia [Unknown]
  - Balance disorder [Unknown]
  - Pruritus [Unknown]

NARRATIVE: CASE EVENT DATE: 20190621
